FAERS Safety Report 7498757-9 (Version None)
Quarter: 2011Q2

REPORT INFORMATION
  Report Type: 
  Country: None (occurrence: None)
  Receive Date: 20110516
  Receipt Date: 20110428
  Transmission Date: 20111010
  Serious: Yes (Hospitalization, Other)
  Sender: FDA-Public Use
  Company Number: 2011HT000001

PATIENT
  Age: 8 Year
  Sex: Male

DRUGS (2)
  1. HYLENEX RECOMBINANT [Suspect]
     Indication: DEHYDRATION
     Dosage: 150 IU;X1;SUBCUTANEOUS
     Route: 058
     Dates: start: 20080801, end: 20080801
  2. HYLENEX RECOMBINANT [Suspect]
     Indication: DEHYDRATION
     Dosage: 150 IU;X1;SUBCUTANEOUS
     Route: 058
     Dates: start: 20080801, end: 20080801

REACTIONS (8)
  - ABDOMINAL DISTENSION [None]
  - HYPONATRAEMIA [None]
  - VOMITING [None]
  - INFUSION SITE SWELLING [None]
  - PAIN IN EXTREMITY [None]
  - INDURATION [None]
  - DIARRHOEA [None]
  - HALLUCINATION [None]
